FAERS Safety Report 6117295-9 (Version None)
Quarter: 2009Q1

REPORT INFORMATION
  Report Type: 
  Country: None (occurrence: None)
  Receive Date: 20090314
  Receipt Date: 20090115
  Transmission Date: 20090719
  Serious: No
  Sender: FDA-Public Use
  Company Number: US-ABBOTT-09P-163-0497469-00

PATIENT
  Sex: Male
  Weight: 64.468 kg

DRUGS (4)
  1. HUMIRA [Suspect]
     Indication: SCOLIOSIS
     Route: 058
     Dates: start: 20081201, end: 20081230
  2. HUMIRA [Suspect]
     Indication: ARTHRITIS
  3. METHOTREXATE [Concomitant]
     Indication: ARTHRITIS
     Route: 048
     Dates: end: 20081230
  4. METHOTREXATE [Concomitant]
     Dates: start: 20090111

REACTIONS (2)
  - COUGH [None]
  - INFLUENZA [None]
